FAERS Safety Report 18249532 (Version 5)
Quarter: 2020Q4

REPORT INFORMATION
  Report Type: Report from Study
  Country: CO (occurrence: CO)
  Receive Date: 20200910
  Receipt Date: 20201210
  Transmission Date: 20210113
  Serious: Yes (Hospitalization, Other)
  Sender: FDA-Public Use
  Company Number: NVSC2020CO229469

PATIENT
  Age: 65 Year
  Sex: Female
  Weight: 44 kg

DRUGS (9)
  1. FLUCONAZOLE. [Concomitant]
     Active Substance: FLUCONAZOLE
     Indication: PRODUCT USED FOR UNKNOWN INDICATION
     Dosage: 200 MG, QD
     Route: 048
     Dates: start: 202007
  2. ENOXAPARIN [Concomitant]
     Active Substance: ENOXAPARIN
     Indication: THROMBOSIS
     Dosage: 60 MG/ 0.6 ML, EVERY 12 HOURS
     Route: 058
     Dates: start: 202007
  3. CITROEN [Concomitant]
     Active Substance: CEFIXIME
     Indication: THYROID DISORDER
     Dosage: 50 MG, QD (DAILY IN AN EMPTY STOMACH) STARTED 12 YEARS AGO
     Route: 048
  4. GILENYA [Suspect]
     Active Substance: FINGOLIMOD HYDROCHLORIDE
     Indication: MULTIPLE SCLEROSIS
     Dosage: 0.5 MG, QD
     Route: 048
     Dates: start: 20180227, end: 20200710
  5. CITROEN [Concomitant]
     Active Substance: CEFIXIME
     Indication: THYROIDECTOMY
  6. CALCIUM, MAGNESIUM + VITAMIN D3 [Concomitant]
     Active Substance: CALCIUM\CHOLECALCIFEROL\MAGNESIUM
     Indication: THYROID DISORDER
     Dosage: UNK UNK, Q12H
     Route: 048
  7. CALCIUM, MAGNESIUM + VITAMIN D3 [Concomitant]
     Active Substance: CALCIUM\CHOLECALCIFEROL\MAGNESIUM
     Indication: THYROIDECTOMY
  8. CALCITRIOL. [Concomitant]
     Active Substance: CALCITRIOL
     Indication: MINERAL SUPPLEMENTATION
     Dosage: 0.25 MG, Q12H
     Route: 048
     Dates: start: 202007
  9. ESOMEPRAZOLE. [Suspect]
     Active Substance: ESOMEPRAZOLE MAGNESIUM
     Indication: GASTRITIS
     Dosage: 20 MG, QD (STARTED 12 YEARS AGO)
     Route: 048

REACTIONS (11)
  - Inflammation [Unknown]
  - Vomiting [Unknown]
  - Lymphoma [Unknown]
  - Decreased appetite [Unknown]
  - Diffuse large B-cell lymphoma [Unknown]
  - Dizziness [Unknown]
  - Vision blurred [Unknown]
  - Product use in unapproved indication [Unknown]
  - Nausea [Unknown]
  - Malaise [Unknown]
  - Stomatitis [Unknown]

NARRATIVE: CASE EVENT DATE: 2019
